FAERS Safety Report 25622584 (Version 1)
Quarter: 2025Q3

REPORT INFORMATION
  Report Type: Spontaneous
  Country: US (occurrence: None)
  Receive Date: 20250729
  Receipt Date: 20250729
  Transmission Date: 20251021
  Serious: Yes (Hospitalization)
  Sender: FDA-CTU
  Company Number: None

PATIENT
  Age: 59 Year
  Sex: Male

DRUGS (17)
  1. TACROLIMUS [Suspect]
     Active Substance: TACROLIMUS
     Indication: Heart transplant
     Dosage: 1 MG TWICE A DAY ORAL
     Route: 048
  2. MYCOPHENOLATE MOFETIL [Suspect]
     Active Substance: MYCOPHENOLATE MOFETIL
     Indication: Heart transplant
     Dosage: 1000MG TWICE A DAY ORAL ?
     Route: 048
  3. AMLODIPINE [Concomitant]
     Active Substance: AMLODIPINE BESYLATE
  4. aspirin 81 mg tablet [Concomitant]
  5. ATOVAQUONE [Concomitant]
     Active Substance: ATOVAQUONE
  6. CALCIUM CITRATE\CHOLECALCIFEROL [Concomitant]
     Active Substance: CALCIUM CITRATE\CHOLECALCIFEROL
  7. doxazosin 2 mg tablet [Concomitant]
  8. DOXAZOSIN [Concomitant]
     Active Substance: DOXAZOSIN MESYLATE
  9. famotidine 20 mg tablet [Concomitant]
  10. insulin lispro 100 U/mL kwik pen [Concomitant]
  11. Jardiance 25 mg tablet [Concomitant]
  12. LANTUS SOLOSTAR [Concomitant]
     Active Substance: INSULIN GLARGINE
  13. melatonin 5 mg tablet [Concomitant]
  14. posaconazole 100 mg DR tablet [Concomitant]
  15. PREDNISONE [Concomitant]
     Active Substance: PREDNISONE
  16. valganciclovir 450 mg tablet [Concomitant]
  17. VITAMIN D2 [Concomitant]
     Active Substance: ERGOCALCIFEROL

REACTIONS (3)
  - Osteoporosis [None]
  - Incorrect dose administered [None]
  - Renal disorder [None]

NARRATIVE: CASE EVENT DATE: 20231120
